FAERS Safety Report 12716557 (Version 1)
Quarter: 2016Q3

REPORT INFORMATION
  Report Type: Spontaneous
  Country: US (occurrence: US)
  Receive Date: 20160906
  Receipt Date: 20160906
  Transmission Date: 20161109
  Serious: Yes (Other)
  Sender: FDA-Public Use
  Company Number: US-PFIZER INC-2016411465

PATIENT
  Age: 39 Year
  Sex: Female

DRUGS (5)
  1. DIPHENHYDRAMINE. [Suspect]
     Active Substance: DIPHENHYDRAMINE
     Indication: MIGRAINE
     Dosage: 25 MG, SINGLE, 25MG INTREVENOUS PUSH X 1 DOSE OVER 2 MINUTES
     Route: 042
     Dates: start: 20160727
  2. KETOROLAC TROMETHAMINE. [Suspect]
     Active Substance: KETOROLAC TROMETHAMINE
     Indication: MIGRAINE
     Dosage: 15 MG, SINGLE, 15MG INTRAVENOUS PUSH OVER 2 MINUTES X 1 DOSE
     Route: 042
     Dates: start: 20160727
  3. METOCLOPRAMIDE HCL [Suspect]
     Active Substance: METOCLOPRAMIDE HYDROCHLORIDE
     Indication: MIGRAINE
     Dosage: 10 MG, SINGLE, 10MG INTRAVENOUS PUSH OVER 2 MINUTES X1 DOSE
     Route: 042
     Dates: start: 20160727
  4. IBUPROFEN. [Concomitant]
     Active Substance: IBUPROFEN
  5. MAXALT [Concomitant]
     Active Substance: RIZATRIPTAN BENZOATE

REACTIONS (5)
  - Dyspnoea [Recovered/Resolved]
  - Vomiting [Recovered/Resolved]
  - Anaphylactic shock [Recovered/Resolved]
  - Generalised erythema [Recovered/Resolved]
  - Swelling face [Recovered/Resolved]

NARRATIVE: CASE EVENT DATE: 20160727
